FAERS Safety Report 18671086 (Version 1)
Quarter: 2020Q4

REPORT INFORMATION
  Report Type: Spontaneous
  Country: GB (occurrence: GB)
  Receive Date: 20201228
  Receipt Date: 20201228
  Transmission Date: 20210114
  Serious: Yes (Other)
  Sender: FDA-Public Use
  Company Number: GB-TEVA-2020-GB-1862359

PATIENT
  Age: 56 Year
  Sex: Female
  Weight: 95 kg

DRUGS (10)
  1. FLUCLOXACILLIN [Concomitant]
     Active Substance: FLUCLOXACILLIN
     Dosage: UNIT DOSE : 4 DF
     Dates: start: 20200923, end: 20200930
  2. FLUTICASONE FUROATE [Concomitant]
     Active Substance: FLUTICASONE FUROATE
     Dosage: SPRAYS. BOTH NOSTRILS. ,UNIT DOSE :  2 DF
     Route: 045
     Dates: start: 20200121
  3. DOXYCYCLINE. [Concomitant]
     Active Substance: DOXYCYCLINE
     Dosage: TWO NOW THEN ONE DAILY
     Dates: start: 20201125, end: 20201202
  4. SOLIFENACIN [Concomitant]
     Active Substance: SOLIFENACIN
     Dosage: TAKE ONE DAILY INCREASING TO 10MG IF NEEDED
     Dates: start: 20200121
  5. TRIMETHOPRIM. [Suspect]
     Active Substance: TRIMETHOPRIM
     Dosage: UNIT DOSE :  400 MG
     Dates: start: 20201129
  6. OMEPRAZOLE. [Concomitant]
     Active Substance: OMEPRAZOLE
     Dosage: UNIT DOSE :  1 DF
     Dates: start: 20200121
  7. PROPRANOLOL [Concomitant]
     Active Substance: PROPRANOLOL HYDROCHLORIDE
     Dosage: UNIT DOSE :   3 DF
     Dates: start: 20200121
  8. NORTRIPTYLINE [Concomitant]
     Active Substance: NORTRIPTYLINE
     Dosage: AS DIRECTED , UNIT DOSE :  1 DF
     Dates: start: 20200121
  9. NAPROXEN. [Concomitant]
     Active Substance: NAPROXEN
     Dosage: UNIT DOSE :  2 DF
     Dates: start: 20200121
  10. AMOXICILLIN. [Concomitant]
     Active Substance: AMOXICILLIN
     Dosage: 3 DF
     Dates: start: 20201119, end: 20201124

REACTIONS (2)
  - Urticaria [Recovered/Resolved]
  - Pruritus [Recovered/Resolved]

NARRATIVE: CASE EVENT DATE: 20201207
